FAERS Safety Report 8432877-7 (Version None)
Quarter: 2012Q2

REPORT INFORMATION
  Report Type: 
  Country: None (occurrence: None)
  Receive Date: 20120613
  Receipt Date: 20120605
  Transmission Date: 20120825
  Serious: Yes (Hospitalization)
  Sender: FDA-Public Use
  Company Number: DE-ROCHE-1068673

PATIENT
  Sex: Male
  Weight: 99 kg

DRUGS (9)
  1. FELODIPINE [Concomitant]
  2. SIMVASTATIN [Concomitant]
  3. FLUOROURACIL [Suspect]
     Dosage: 2640MG/48H DRIP
     Route: 042
  4. OXALIPLATIN [Suspect]
     Indication: COLORECTAL CANCER METASTATIC
     Dosage: LAST DOSE PRIOR TO SAE: 02/MAY/2012
     Route: 042
     Dates: start: 20120419
  5. RAMIPRIL [Concomitant]
  6. AVASTIN [Suspect]
     Indication: COLORECTAL CANCER METASTATIC
     Dosage: LAST DOSE PRIOR TO SAE: 02/MAY/2012
     Route: 042
     Dates: start: 20120419
  7. FLUOROURACIL [Suspect]
     Indication: COLORECTAL CANCER METASTATIC
     Dosage: BOLUS, LAST DOSE PRIOR TO SAE: 02/MAY/2012
     Route: 042
     Dates: start: 20120419
  8. LEUCOVORIN CALCIUM [Suspect]
     Indication: COLORECTAL CANCER METASTATIC
     Dosage: LAST DOSE PRIOR TO SAE: 02/MAY/2012
     Route: 042
     Dates: start: 20120419
  9. BISOPROLOL COMP [Concomitant]
     Dosage: 2.5/6.25MG

REACTIONS (3)
  - HERNIA OBSTRUCTIVE [None]
  - SEPSIS [None]
  - ABSCESS [None]
